FAERS Safety Report 10453772 (Version 1)
Quarter: 2014Q3

REPORT INFORMATION
  Report Type: Spontaneous
  Country: US (occurrence: US)
  Receive Date: 20140915
  Receipt Date: 20140915
  Transmission Date: 20150326
  Serious: No
  Sender: FDA-Public Use
  Company Number: US-BRISTOL-MYERS SQUIBB COMPANY-21269667

PATIENT
  Age: 80 Year
  Sex: Male

DRUGS (2)
  1. LOVENOX [Concomitant]
     Active Substance: ENOXAPARIN SODIUM
     Dosage: 1 SHOT=1 DOSAGE.?EARLIER 2 SHOTS PER DAY.
  2. ELIQUIS [Suspect]
     Active Substance: APIXABAN
     Dates: start: 2014

REACTIONS (1)
  - Contusion [Unknown]
